FAERS Safety Report 17394177 (Version 2)
Quarter: 2021Q1

REPORT INFORMATION
  Report Type: Spontaneous
  Country: US (occurrence: US)
  Receive Date: 20200210
  Receipt Date: 20210203
  Transmission Date: 20210419
  Serious: No
  Sender: FDA-Public Use
  Company Number: US-ALLERGAN-1951570US

PATIENT
  Age: 53 Year
  Sex: Female

DRUGS (5)
  1. BOTOX COSMETIC [Suspect]
     Active Substance: ONABOTULINUMTOXINA
     Indication: SKIN WRINKLING
     Dosage: UNK, SINGLE
     Dates: start: 20190821, end: 20190821
  2. BOTOX COSMETIC [Suspect]
     Active Substance: ONABOTULINUMTOXINA
     Indication: SKIN WRINKLING
     Dosage: UNK, SINGLE
     Dates: start: 20190821, end: 20190821
  3. BOTOX COSMETIC [Suspect]
     Active Substance: ONABOTULINUMTOXINA
     Indication: SKIN WRINKLING
     Dosage: UNK, SINGLE
     Dates: start: 20190821, end: 20190821
  4. BOTOX COSMETIC [Suspect]
     Active Substance: ONABOTULINUMTOXINA
     Indication: SKIN WRINKLING
     Dosage: UNK, SINGLE
     Dates: start: 20190821, end: 20190821
  5. BOTOX COSMETIC [Suspect]
     Active Substance: ONABOTULINUMTOXINA
     Dosage: UNK, SINGLE
     Dates: start: 20190821, end: 20190821

REACTIONS (7)
  - Drug hypersensitivity [Recovered/Resolved]
  - Facial paresis [Recovered/Resolved]
  - Paralysis [Recovered/Resolved]
  - Therapeutic product effect increased [Unknown]
  - Off label use [Unknown]
  - Skin mass [Recovered/Resolved]
  - Deformity [Recovered/Resolved]

NARRATIVE: CASE EVENT DATE: 20190821
